FAERS Safety Report 11526917 (Version 1)
Quarter: 2015Q3

REPORT INFORMATION
  Report Type: Spontaneous
  Country: US (occurrence: US)
  Receive Date: 20150903
  Receipt Date: 20150903
  Transmission Date: 20151125
  Serious: No
  Sender: FDA-Public Use
  Company Number: US-ELI_LILLY_AND_COMPANY-US200912006098

PATIENT
  Sex: Male
  Weight: 86.17 kg

DRUGS (3)
  1. ACTOS [Concomitant]
     Active Substance: PIOGLITAZONE HYDROCHLORIDE
     Dosage: 1 D/F, DAILY (1/D)
  2. HUMALOG [Suspect]
     Active Substance: INSULIN LISPRO
     Indication: DIABETES MELLITUS
     Dosage: 9 U, 3/D
  3. LANTUS [Concomitant]
     Active Substance: INSULIN GLARGINE
     Dosage: 45 U, DAILY (1/D)

REACTIONS (1)
  - Incorrect dose administered [Unknown]
